FAERS Safety Report 8886212 (Version 3)
Quarter: 2014Q2

REPORT INFORMATION
  Report Type: Spontaneous
  Country: US (occurrence: US)
  Receive Date: 20121105
  Receipt Date: 20131018
  Transmission Date: 20141212
  Serious: Yes (Other)
  Sender: FDA-Public Use
  Company Number: US-PFIZER INC-2012272733

PATIENT
  Sex: Female
  Weight: 61.68 kg

DRUGS (3)
  1. MORPHINE SULFATE [Suspect]
     Dosage: UNK
     Route: 048
     Dates: start: 2009
  2. LEVOTHYROXINE [Concomitant]
     Indication: HYPOTHYROIDISM
     Dosage: UNK
  3. LOVASTATIN [Concomitant]
     Indication: BLOOD CHOLESTEROL ABNORMAL
     Dosage: UNK

REACTIONS (4)
  - Fall [Recovering/Resolving]
  - Rib fracture [Recovering/Resolving]
  - Dizziness [Recovering/Resolving]
  - Peripheral swelling [Unknown]
